FAERS Safety Report 7067426-1 (Version None)
Quarter: 2010Q4

REPORT INFORMATION
  Report Type: 
  Country: None (occurrence: None)
  Receive Date: 20101028
  Receipt Date: 20101018
  Transmission Date: 20110411
  Serious: Yes (Other)
  Sender: FDA-Public Use
  Company Number: CA-JNJFOC-20101005535

PATIENT
  Age: 73 Year
  Sex: Male
  Weight: 81.65 kg

DRUGS (25)
  1. IMODIUM [Suspect]
     Route: 048
  2. IMODIUM [Suspect]
     Indication: DIARRHOEA
     Dosage: 1-2 CAPLETS FOR EVERY 3 HOURS
     Route: 048
  3. ACETAMINOPHEN [Concomitant]
     Indication: PAIN
     Dosage: 1-2 CAPLETS DAILY
  4. ASPIRIN [Concomitant]
     Indication: ANTICOAGULANT THERAPY
  5. SLEEPING TABLETS [Concomitant]
     Indication: SLEEP DISORDER THERAPY
  6. APO-FLURAZEPAM [Concomitant]
     Indication: SLEEP DISORDER THERAPY
  7. ANDROGEL [Concomitant]
     Indication: HORMONE REPLACEMENT THERAPY
  8. BISOPROLOL [Concomitant]
     Indication: PULSE ABNORMAL
  9. CLOBETASOL PROPIONATE [Concomitant]
     Indication: ECZEMA
  10. FUROSEMIDE [Concomitant]
     Indication: DIURETIC THERAPY
  11. FLUOXETINE [Concomitant]
     Indication: DEPRESSION
  12. PANTOPRAZOLE SODIUM [Concomitant]
     Indication: GASTRIC DISORDER
  13. AMLODIPINE [Concomitant]
     Indication: BLOOD PRESSURE
  14. NORVASC [Concomitant]
     Indication: BLOOD PRESSURE
  15. SLOW FE [Concomitant]
     Indication: MINERAL SUPPLEMENTATION
  16. APO-K [Concomitant]
     Indication: MINERAL SUPPLEMENTATION
  17. LOMOTIL [Concomitant]
     Indication: DIARRHOEA
  18. COLCHICINE [Concomitant]
     Indication: GOUT
  19. INDOMETHACIN [Concomitant]
     Indication: GOUT
  20. LENOLTECH NO 3 [Concomitant]
     Indication: GOUT
  21. ALLOPURINOL [Concomitant]
     Indication: GOUT
  22. ATROVENT HFA [Concomitant]
     Indication: NASAL CONGESTION
     Dosage: 2 SPRAYS PER NOSTRIL
     Route: 045
  23. ASPIRIN [Concomitant]
     Indication: CARDIOVASCULAR DISORDER
  24. PROCTOMYXIN HC [Concomitant]
     Indication: HAEMORRHOIDS
  25. SIMVASTATIN [Concomitant]
     Indication: BLOOD CHOLESTEROL

REACTIONS (3)
  - DRUG INEFFECTIVE [None]
  - OVERDOSE [None]
  - WEIGHT DECREASED [None]
